FAERS Safety Report 18684123 (Version 1)
Quarter: 2020Q4

REPORT INFORMATION
  Report Type: Spontaneous
  Country: BR (occurrence: BR)
  Receive Date: 20201230
  Receipt Date: 20201230
  Transmission Date: 20210114
  Serious: Yes (Life-Threatening, Hospitalization, Other)
  Sender: FDA-Public Use
  Company Number: BR-MYLANLABS-2020M1106180

PATIENT
  Age: 38 Year
  Sex: Female

DRUGS (3)
  1. GEMCITABINE. [Suspect]
     Active Substance: GEMCITABINE
     Indication: ADENOCARCINOMA OF THE CERVIX
     Dosage: 100 MILLIGRAM/SQ. METER, CYCLE
     Route: 065
  2. CISPLATIN. [Suspect]
     Active Substance: CISPLATIN
     Indication: ADENOCARCINOMA OF THE CERVIX
     Dosage: 40 MILLIGRAM/SQ. METER, QW
     Route: 065
  3. CISPLATIN. [Suspect]
     Active Substance: CISPLATIN
     Dosage: 50 MILLIGRAM/SQ. METER, CYCLE
     Route: 065

REACTIONS (7)
  - Myelosuppression [Unknown]
  - Ventricular fibrillation [Recovered/Resolved]
  - Myocardial fibrosis [Recovered/Resolved]
  - Stress cardiomyopathy [Recovered/Resolved]
  - Pericarditis [Recovered/Resolved]
  - Left ventricular dysfunction [Recovered/Resolved]
  - Cardio-respiratory arrest [Recovered/Resolved]
